FAERS Safety Report 23222198 (Version 4)
Quarter: 2024Q1

REPORT INFORMATION
  Report Type: Spontaneous
  Country: US (occurrence: US)
  Receive Date: 20231123
  Receipt Date: 20240206
  Transmission Date: 20240409
  Serious: No
  Sender: FDA-Public Use
  Company Number: US-BRISTOL-MYERS SQUIBB COMPANY-2023-167883

PATIENT
  Age: 75 Year
  Sex: Female

DRUGS (2)
  1. LENALIDOMIDE [Suspect]
     Active Substance: LENALIDOMIDE
     Indication: Bone cancer
     Dosage: TAKE 1 CAPSULE BY MOUTH DAILY FOR 3 WEEKS ON FOLLOWED BY 1 WEEK OFF
     Route: 048
     Dates: start: 20231019
  2. LENALIDOMIDE [Suspect]
     Active Substance: LENALIDOMIDE
     Indication: Metastasis
     Route: 048
     Dates: start: 20231109

REACTIONS (3)
  - Rash pruritic [Recovering/Resolving]
  - Fatigue [Unknown]
  - Off label use [Unknown]
